FAERS Safety Report 17111555 (Version 2)
Quarter: 2020Q1

REPORT INFORMATION
  Report Type: Spontaneous
  Country: US (occurrence: US)
  Receive Date: 20191204
  Receipt Date: 20200122
  Transmission Date: 20200409
  Serious: No
  Sender: FDA-Public Use
  Company Number: US-LEO PHARMA-326679

PATIENT
  Age: 59 Year
  Sex: Female

DRUGS (2)
  1. PICATO [Suspect]
     Active Substance: INGENOL MEBUTATE
     Indication: PRECANCEROUS SKIN LESION
     Dosage: TO BE APPLIED IN THE NIGHT FOR THREE NIGHTS
     Route: 061
     Dates: start: 20191121, end: 20191123
  2. PICATO [Suspect]
     Active Substance: INGENOL MEBUTATE
     Indication: SKIN DEPIGMENTATION

REACTIONS (5)
  - Product container seal issue [Unknown]
  - Drug ineffective [Unknown]
  - Inappropriate schedule of product administration [Unknown]
  - Application site pain [Recovered/Resolved]
  - Product odour abnormal [Unknown]

NARRATIVE: CASE EVENT DATE: 20191121
